FAERS Safety Report 16821986 (Version 3)
Quarter: 2019Q4

REPORT INFORMATION
  Report Type: Spontaneous
  Country: EC (occurrence: EC)
  Receive Date: 20190918
  Receipt Date: 20191101
  Transmission Date: 20200122
  Serious: Yes (Other)
  Sender: FDA-Public Use
  Company Number: US-AMGEN-ECUSP2019135931

PATIENT
  Age: 60 Year
  Sex: Male
  Weight: 65 kg

DRUGS (9)
  1. SINGLE DOSE PREFILLED SYRINGE(NEULASTIM) [Suspect]
     Active Substance: PEGFILGRASTIM
     Indication: DIFFUSE LARGE B-CELL LYMPHOMA
     Dosage: 6 MILLIGRAM, CYCLICAL
     Route: 058
     Dates: start: 20190628
  2. RITUXIMAB. [Suspect]
     Active Substance: RITUXIMAB
     Dosage: UNK UNK, CYCLICAL, (REDUCTION OF DOSE OF 10% IN EACH CYCLE)
     Route: 065
     Dates: start: 2019
  3. DOXORUBICIN [Suspect]
     Active Substance: DOXORUBICIN
     Dosage: UNK UNK, CYCLICAL, (REDUCTION OF DOSE OF 10% IN EACH CYCLE)
     Route: 065
     Dates: start: 2019
  4. DOXORUBICIN [Suspect]
     Active Substance: DOXORUBICIN
     Indication: DIFFUSE LARGE B-CELL LYMPHOMA
     Dosage: 1200 MILLIGRAM, CYCLICAL
     Route: 065
     Dates: start: 20190723, end: 2019
  5. RITUXIMAB. [Suspect]
     Active Substance: RITUXIMAB
     Indication: DIFFUSE LARGE B-CELL LYMPHOMA
     Dosage: 600 MILLIGRAM, CYCLICAL
     Route: 065
     Dates: start: 20190627, end: 2019
  6. CYCLOPHOSPHAMIDE. [Suspect]
     Active Substance: CYCLOPHOSPHAMIDE
     Indication: DIFFUSE LARGE B-CELL LYMPHOMA
     Dosage: 800 MILLIGRAM, CYCLICAL
     Route: 065
     Dates: start: 20190723, end: 2019
  7. PREDNISONE. [Concomitant]
     Active Substance: PREDNISONE
     Indication: DIFFUSE LARGE B-CELL LYMPHOMA
     Dosage: UNK, CYCLICAL (REDUCTION OF DOSE OF 10% IN EACH CYCLE)
     Route: 065
     Dates: start: 20190723
  8. CYCLOPHOSPHAMIDE. [Suspect]
     Active Substance: CYCLOPHOSPHAMIDE
     Dosage: UNK UNK, CYCLICAL, (REDUCTION OF DOSE OF 10% IN EACH CYCLE)
     Route: 065
     Dates: start: 2019
  9. VINCRISTINE [Concomitant]
     Active Substance: VINCRISTINE
     Indication: DIFFUSE LARGE B-CELL LYMPHOMA
     Dosage: UNK, CYCLICAL (REDUCTION OF DOSE OF 10% IN EACH CYCLE)
     Route: 065
     Dates: start: 20190723

REACTIONS (2)
  - Neutropenia [Not Recovered/Not Resolved]
  - Off label use [Unknown]

NARRATIVE: CASE EVENT DATE: 20190628
